FAERS Safety Report 8940013 (Version 3)
Quarter: 2013Q3

REPORT INFORMATION
  Report Type: Spontaneous
  Country: US (occurrence: US)
  Receive Date: 20121203
  Receipt Date: 20130717
  Transmission Date: 20140515
  Serious: No
  Sender: FDA-Public Use
  Company Number: US-009507513-1211USA010224

PATIENT
  Sex: Female
  Weight: 115.65 kg

DRUGS (1)
  1. NUVARING [Suspect]
     Indication: CONTRACEPTION
     Dosage: UNK
     Route: 067
     Dates: start: 201107, end: 2012

REACTIONS (8)
  - Thrombosis [Unknown]
  - Major depression [Unknown]
  - Pruritus generalised [Unknown]
  - Blood pressure increased [Unknown]
  - Back pain [Unknown]
  - Anaemia [Unknown]
  - Acute tonsillitis [Unknown]
  - Dysfunctional uterine bleeding [Unknown]
